FAERS Safety Report 25792605 (Version 1)
Quarter: 2025Q3

REPORT INFORMATION
  Report Type: Spontaneous
  Country: US (occurrence: US)
  Receive Date: 20250911
  Receipt Date: 20250911
  Transmission Date: 20251020
  Serious: Yes (Other)
  Sender: AMGEN
  Company Number: US-AMGEN-USASP2025177235

PATIENT
  Age: 61 Year
  Sex: Male

DRUGS (3)
  1. APREMILAST [Suspect]
     Active Substance: APREMILAST
     Indication: Psoriasis
     Route: 065
  2. APREMILAST [Suspect]
     Active Substance: APREMILAST
     Indication: Psoriatic arthropathy
  3. NIVOLUMAB [Concomitant]
     Active Substance: NIVOLUMAB
     Indication: Head and neck cancer stage IV
     Route: 065

REACTIONS (1)
  - Head and neck cancer stage IV [Unknown]
